FAERS Safety Report 5089879-0 (Version None)
Quarter: 2006Q3

REPORT INFORMATION
  Report Type: 
  Country: None (occurrence: None)
  Receive Date: 20060828
  Receipt Date: 20060823
  Transmission Date: 20061208
  Serious: Yes (Other)
  Sender: FDA-Public Use
  Company Number: US-JNJFOC-20060604175

PATIENT
  Sex: Female
  Weight: 64.86 kg

DRUGS (6)
  1. REMICADE [Suspect]
     Route: 042
  2. REMICADE [Suspect]
     Indication: CROHN'S DISEASE
     Route: 042
  3. ALTACE [Concomitant]
  4. TOPROL-XL [Concomitant]
  5. DYNACIRC CR [Concomitant]
  6. K-DUR 10 [Concomitant]
     Route: 048

REACTIONS (7)
  - ANAEMIA [None]
  - ARTHRALGIA [None]
  - FATIGUE [None]
  - GAIT DISTURBANCE [None]
  - HYPERTENSION [None]
  - NAUSEA [None]
  - PYREXIA [None]
